FAERS Safety Report 20135449 (Version 1)
Quarter: 2021Q4

REPORT INFORMATION
  Report Type: Spontaneous
  Country: US (occurrence: US)
  Receive Date: 20211201
  Receipt Date: 20211201
  Transmission Date: 20220303
  Serious: Yes (Death, Hospitalization)
  Sender: FDA-Public Use
  Company Number: US-JNJFOC-20211146137

PATIENT
  Age: 41 Year
  Sex: Female
  Weight: 48 kg

DRUGS (10)
  1. TYLENOL [Suspect]
     Active Substance: ACETAMINOPHEN
     Indication: Pain
     Dosage: TYLENOL (ACETAMINOPHEN 325 MG) TABLETS. 8 TABLETS TAKEN IN ONE DAY
     Route: 048
     Dates: end: 20011004
  2. VICODIN HP [Suspect]
     Active Substance: ACETAMINOPHEN\HYDROCODONE BITARTRATE
     Indication: Pain
     Dosage: VICODIN HP (ACETAMINOPHEN 660 MG/HYDROCODONE BITARTRATE 10 MG) TABLETS. 8 TABLETS TAKEN (TOTAL DOSE
     Route: 048
     Dates: end: 20011004
  3. RESTORIL [Concomitant]
     Active Substance: TEMAZEPAM
     Indication: Product used for unknown indication
     Dosage: UNKNOWN DOSE FOR 36 MONTHS
     Route: 065
     Dates: end: 20011004
  4. ATIVAN [Concomitant]
     Active Substance: LORAZEPAM
     Indication: Product used for unknown indication
     Dosage: 3 MG FOR 12 MONTHS
     Route: 065
     Dates: end: 20011004
  5. ACTIGALL [Concomitant]
     Active Substance: URSODIOL
     Indication: Product used for unknown indication
     Dosage: UNKNOWN DOSE FOR 4 MONTHS
     Route: 065
     Dates: end: 20011004
  6. PROCHLORPERAZINE [Concomitant]
     Active Substance: PROCHLORPERAZINE
     Indication: Product used for unknown indication
     Dosage: UNKNOWN DOSE FOR 36 MONTHS
     Route: 065
     Dates: end: 20011004
  7. BENTYL [Concomitant]
     Active Substance: DICYCLOMINE HYDROCHLORIDE
     Indication: Product used for unknown indication
     Dosage: UNKNOWN DOSE
     Route: 065
     Dates: end: 20011004
  8. PHENERGAN [Concomitant]
     Active Substance: PROMETHAZINE HYDROCHLORIDE
     Indication: Product used for unknown indication
     Dosage: UNKNOWN DOSE FOR 24 MONTHS
     Route: 065
     Dates: end: 20011005
  9. DILAUDID [Concomitant]
     Active Substance: HYDROMORPHONE HYDROCHLORIDE
     Indication: Product used for unknown indication
     Dosage: UNKNOWN DOSE FOR 36 MONTHS
     Route: 065
     Dates: end: 20011005
  10. AMINO ACIDS\DEXTROSE\ELECTROLYTES NOS [Concomitant]
     Active Substance: AMINO ACIDS\DEXTROSE\ELECTROLYTES NOS
     Indication: Gastrooesophageal reflux disease
     Dosage: FOR 10 YEARS
     Route: 065

REACTIONS (10)
  - Acute hepatic failure [Fatal]
  - Acute kidney injury [Fatal]
  - Epistaxis [Fatal]
  - Haematemesis [Fatal]
  - Multiple organ dysfunction syndrome [Fatal]
  - Fungal infection [Fatal]
  - Bronchopulmonary aspergillosis [Fatal]
  - Aspergillus infection [Fatal]
  - Accidental overdose [Fatal]
  - Product administration error [Fatal]
